FAERS Safety Report 22074115 (Version 1)
Quarter: 2023Q1

REPORT INFORMATION
  Report Type: Spontaneous
  Country: US (occurrence: None)
  Receive Date: 20230307
  Receipt Date: 20230307
  Transmission Date: 20230418
  Serious: Yes (Other)
  Sender: FDA-Public Use
  Company Number: None

PATIENT
  Age: 45 Year
  Sex: Female
  Weight: 99 kg

DRUGS (1)
  1. SCOPOLAMINE TRANDERMAL SYSTEM [Suspect]
     Active Substance: SCOPOLAMINE
     Indication: Nausea
     Dosage: OTHER QUANTITY : 1 PATCH(ES);?
     Route: 062

REACTIONS (9)
  - Disorientation [None]
  - Hallucination [None]
  - Insomnia [None]
  - Nausea [None]
  - Muscle spasms [None]
  - Palpitations [None]
  - Loss of consciousness [None]
  - Feeling abnormal [None]
  - Rapid eye movement sleep behaviour disorder [None]

NARRATIVE: CASE EVENT DATE: 20230305
